FAERS Safety Report 25794556 (Version 1)
Quarter: 2025Q3

REPORT INFORMATION
  Report Type: Spontaneous
  Country: EU (occurrence: EU)
  Receive Date: 20250912
  Receipt Date: 20250912
  Transmission Date: 20251020
  Serious: Yes (Death, Other)
  Sender: ORGANON
  Company Number: None

PATIENT
  Age: 76 Year
  Sex: Female

DRUGS (1)
  1. ALENDRONATE SODIUM [Suspect]
     Active Substance: ALENDRONATE SODIUM
     Indication: Osteoporosis
     Route: 048
     Dates: start: 20130517, end: 202104

REACTIONS (5)
  - Squamous cell carcinoma [Fatal]
  - Oesophageal stenosis [Unknown]
  - Barrett^s oesophagus [Unknown]
  - Oesophageal pain [Unknown]
  - Tissue injury [Unknown]

NARRATIVE: CASE EVENT DATE: 20230404
